FAERS Safety Report 4496869-5 (Version None)
Quarter: 2004Q4

REPORT INFORMATION
  Report Type: 
  Country: None (occurrence: None)
  Receive Date: 20041109
  Receipt Date: 20041104
  Transmission Date: 20050328
  Serious: Yes (Hospitalization)
  Sender: FDA-Public Use
  Company Number: DE-GLAXOSMITHKLINE-D0045109A

PATIENT
  Sex: Male

DRUGS (3)
  1. VIANI [Suspect]
     Route: 055
  2. SPIRIVA [Suspect]
     Route: 065
  3. BERODUAL [Suspect]
     Route: 065

REACTIONS (1)
  - CHOLESTASIS [None]
